FAERS Safety Report 22602332 (Version 1)
Quarter: 2023Q2

REPORT INFORMATION
  Report Type: Report from Study
  Country: PL (occurrence: PL)
  Receive Date: 20230614
  Receipt Date: 20230614
  Transmission Date: 20230722
  Serious: Yes (Hospitalization)
  Sender: FDA-Public Use
  Company Number: PL-Teikoku Pharma USA-TPU2023-00358

PATIENT
  Sex: Female
  Weight: 78 kg

DRUGS (8)
  1. LIDOCAINE [Suspect]
     Active Substance: LIDOCAINE
     Indication: Anaesthesia
     Route: 065
     Dates: start: 20221115, end: 20221115
  2. LIDOCAINE [Suspect]
     Active Substance: LIDOCAINE
     Route: 014
     Dates: start: 20230316, end: 20230316
  3. RESINIFERATOXIN [Suspect]
     Active Substance: RESINIFERATOXIN
     Indication: Osteoarthritis
     Route: 014
     Dates: start: 20221115, end: 20221115
  4. RESINIFERATOXIN [Suspect]
     Active Substance: RESINIFERATOXIN
     Dates: start: 20230316, end: 20230316
  5. METAMIZOLE MAGNESIUM [Concomitant]
     Active Substance: METAMIZOLE MAGNESIUM
     Dates: start: 20230401, end: 20230414
  6. RAMIPRIL [Concomitant]
     Active Substance: RAMIPRIL
     Dates: start: 202201
  7. INDAPAMIDE [Concomitant]
     Active Substance: INDAPAMIDE
     Dates: start: 202201
  8. ROSUVASTATIN CALCIUM [Concomitant]
     Active Substance: ROSUVASTATIN CALCIUM
     Dates: start: 202108

REACTIONS (1)
  - Carpal tunnel decompression [Recovered/Resolved]

NARRATIVE: CASE EVENT DATE: 20230401
